FAERS Safety Report 5779151-5 (Version None)
Quarter: 2008Q2

REPORT INFORMATION
  Report Type: 
  Country: None (occurrence: None)
  Receive Date: 20080617
  Receipt Date: 20080602
  Transmission Date: 20081010
  Serious: Yes (Hospitalization, Disabling, Other)
  Sender: FDA-Public Use
  Company Number: 2008S1009675

PATIENT
  Sex: Female

DRUGS (2)
  1. PHENYTOIN SODIUM [Suspect]
     Indication: CONVULSION
     Dosage: ORAL
     Route: 048
     Dates: start: 20020501
  2. FOSPHENYTOIN [Suspect]

REACTIONS (6)
  - BLINDNESS UNILATERAL [None]
  - EYE INJURY [None]
  - EYE PAIN [None]
  - STEVENS-JOHNSON SYNDROME [None]
  - VISUAL ACUITY REDUCED [None]
  - VISUAL DISTURBANCE [None]
